FAERS Safety Report 6506043-6 (Version None)
Quarter: 2009Q4

REPORT INFORMATION
  Report Type: 
  Country: None (occurrence: None)
  Receive Date: 20091201
  Receipt Date: 20090807
  Transmission Date: 20100525
  Serious: Yes (Hospitalization, Other)
  Sender: FDA-Public Use
  Company Number: 2008-183092-NL

PATIENT
  Age: 27 Year
  Sex: Female
  Weight: 78 kg

DRUGS (2)
  1. NUVARING [Suspect]
     Indication: CONTRACEPTION
     Dates: start: 20071001, end: 20071105
  2. LEVOXYL [Concomitant]

REACTIONS (1)
  - PULMONARY EMBOLISM [None]
